FAERS Safety Report 9717624 (Version 1)
Quarter: 2013Q4

REPORT INFORMATION
  Report Type: Spontaneous
  Country: FR (occurrence: FR)
  Receive Date: 20131127
  Receipt Date: 20131127
  Transmission Date: 20140711
  Serious: Yes (Death)
  Sender: FDA-Public Use
  Company Number: FR-PFIZER INC-2013336834

PATIENT
  Age: 47 Year
  Sex: Female

DRUGS (2)
  1. INLYTA [Suspect]
     Indication: RENAL CANCER METASTATIC
     Dosage: UNK
     Dates: start: 2013
  2. AUGMENTIN [Concomitant]
     Indication: LUNG DISORDER
     Dosage: 1 G, 3X/DAY
     Route: 048
     Dates: start: 201310

REACTIONS (3)
  - General physical health deterioration [Fatal]
  - Disease progression [Fatal]
  - Renal cancer metastatic [Fatal]
